FAERS Safety Report 4673551-2 (Version None)
Quarter: 2005Q2

REPORT INFORMATION
  Report Type: 
  Country: None (occurrence: None)
  Receive Date: 20050523
  Receipt Date: 20050510
  Transmission Date: 20051028
  Serious: Yes (Death, Hospitalization)
  Sender: FDA-Public Use
  Company Number: 2004071481

PATIENT
  Age: 46 Year
  Sex: Male

DRUGS (9)
  1. DIPHENHYDRAMINE HCL [Suspect]
     Indication: COMPLETED SUICIDE
  2. IBUPROFEN [Suspect]
     Indication: COMPLETED SUICIDE
  3. HALOPERIDOL [Suspect]
     Indication: COMPLETED SUICIDE
  4. CHLORZOXAZONE [Suspect]
     Indication: COMPLETED SUICIDE
  5. CYCLOBENZAPRINE HCL [Suspect]
  6. METHYLPHENIDATE HCL [Suspect]
     Indication: COMPLETED SUICIDE
  7. CEPHALEXIN [Suspect]
     Indication: COMPLETED SUICIDE
  8. NAPROXEN [Suspect]
     Indication: COMPLETED SUICIDE
  9. ETHANOL (ETHANOL) [Suspect]
     Indication: COMPLETED SUICIDE

REACTIONS (9)
  - BLOOD DISORDER [None]
  - COMPLETED SUICIDE [None]
  - DEPRESSED LEVEL OF CONSCIOUSNESS [None]
  - ELECTROCARDIOGRAM QRS COMPLEX PROLONGED [None]
  - HEART RATE INCREASED [None]
  - INTENTIONAL MISUSE [None]
  - MULTIPLE DRUG OVERDOSE [None]
  - RESPIRATORY ARREST [None]
  - STUPOR [None]
